FAERS Safety Report 23631419 (Version 1)
Quarter: 2024Q1

REPORT INFORMATION
  Report Type: Spontaneous
  Country: DE (occurrence: DE)
  Receive Date: 20240314
  Receipt Date: 20240314
  Transmission Date: 20240410
  Serious: Yes (Death, Other)
  Sender: FDA-Public Use
  Company Number: DE-Long Grove-000040

PATIENT
  Age: 61 Year
  Sex: Male

DRUGS (5)
  1. METHADONE [Suspect]
     Active Substance: METHADONE HYDROCHLORIDE
     Dosage: INGESTED
  2. HEROIN [Suspect]
     Active Substance: DIAMORPHINE
  3. COCAINE [Suspect]
     Active Substance: COCAINE
  4. AMPHETAMINE [Suspect]
     Active Substance: AMPHETAMINE
  5. BUPRENORPHINE [Suspect]
     Active Substance: BUPRENORPHINE

REACTIONS (3)
  - Completed suicide [Fatal]
  - Drug abuse [Fatal]
  - Shock haemorrhagic [Fatal]
